FAERS Safety Report 20195713 (Version 5)
Quarter: 2022Q3

REPORT INFORMATION
  Report Type: Report from Study
  Country: MX (occurrence: MX)
  Receive Date: 20211216
  Receipt Date: 20220718
  Transmission Date: 20221027
  Serious: Yes (Other)
  Sender: FDA-Public Use
  Company Number: MX-NOVARTISPH-NVSC2021MX288281

PATIENT
  Age: 85 Year
  Sex: Female
  Weight: 50 kg

DRUGS (6)
  1. EXFORGE [Suspect]
     Active Substance: AMLODIPINE BESYLATE\VALSARTAN
     Indication: Hypertension
     Dosage: 0.5 DOSAGE FORM, BID (STARTED AROUND 25 YEARS AGO)
     Route: 048
     Dates: end: 20200520
  2. EXFORGE [Suspect]
     Active Substance: AMLODIPINE BESYLATE\VALSARTAN
     Dosage: 1.5 DOSAGE FORM, BID (1 IN THE MORNING AND HALF IN THE NIGHT)
     Route: 048
     Dates: start: 20200520
  3. EXFORGE [Suspect]
     Active Substance: AMLODIPINE BESYLATE\VALSARTAN
     Dosage: 0.5 DOSAGE FORM, Q12H (STARTED AROUND 20 YEARS AGO)(IN THE MORNING AND AT NIGHT)
     Route: 048
     Dates: end: 202005
  4. EXFORGE [Suspect]
     Active Substance: AMLODIPINE BESYLATE\VALSARTAN
     Dosage: 1.5 DOSAGE FORM, BID (1 IN THE MORNING AND HALF IN THE NIGHT)
     Route: 048
     Dates: start: 202005
  5. OMEPRAZOLE [Concomitant]
     Active Substance: OMEPRAZOLE
     Indication: Abdominal discomfort
     Dosage: 1 DOSAGE FORM, QD (MANY YEARS AGO)
     Route: 048
  6. METFORMIN [Concomitant]
     Active Substance: METFORMIN HYDROCHLORIDE
     Indication: Diabetes mellitus
     Dosage: 850 MG, AFTER FOOD (MANY YEARS AGO)
     Route: 048

REACTIONS (10)
  - Cerebral infarction [Recovered/Resolved with Sequelae]
  - Hip fracture [Recovered/Resolved with Sequelae]
  - Fall [Recovered/Resolved]
  - Gait inability [Recovered/Resolved with Sequelae]
  - Syncope [Recovered/Resolved]
  - Blood pressure abnormal [Not Recovered/Not Resolved]
  - Dyskinesia [Not Recovered/Not Resolved]
  - Anxiety [Not Recovered/Not Resolved]
  - Blood pressure fluctuation [Recovered/Resolved]
  - Off label use [Unknown]

NARRATIVE: CASE EVENT DATE: 20200501
